FAERS Safety Report 4579200-6 (Version None)
Quarter: 2005Q1

REPORT INFORMATION
  Report Type: 
  Country: None (occurrence: None)
  Receive Date: 20050209
  Receipt Date: 20050209
  Transmission Date: 20050727
  Serious: Yes (Other)
  Sender: FDA-Public Use
  Company Number: None

PATIENT
  Sex: Male
  Weight: 70.3075 kg

DRUGS (10)
  1. GEMCITABINE      100MG/ML      LILLY [Suspect]
     Indication: PANCREATIC CARCINOMA
     Dosage: 1000MG/M2 +     DAY 1 + 15    INTRAVENOU
     Route: 042
     Dates: start: 20041102, end: 20050118
  2. CISPLATIN [Suspect]
     Indication: PANCREATIC CARCINOMA
     Dosage: 1000MG/M2 +   DAY 1 + 15   INTRAVENOU
     Route: 042
     Dates: start: 20041102, end: 20050118
  3. BEVACIZUMAB          GENENTECH [Suspect]
     Indication: PANCREATIC CARCINOMA
     Dosage: 10MG/KG      DAY 1 + 15     INTRAVENOU
     Route: 042
     Dates: start: 20041102, end: 20050118
  4. ADALAT [Concomitant]
  5. METROOPROLOL [Concomitant]
  6. LISINOPRIL [Concomitant]
  7. COUMADIN [Concomitant]
  8. COMPAZINE [Concomitant]
  9. LORAZEPAM [Concomitant]
  10. BACLOFEN [Concomitant]

REACTIONS (1)
  - NEUTROPHIL COUNT DECREASED [None]
